FAERS Safety Report 18733361 (Version 1)
Quarter: 2021Q1

REPORT INFORMATION
  Report Type: Spontaneous
  Country: PK (occurrence: PK)
  Receive Date: 20210113
  Receipt Date: 20210113
  Transmission Date: 20210419
  Serious: Yes (Life-Threatening)
  Sender: FDA-Public Use
  Company Number: PK-GE HEALTHCARE LIFE SCIENCES-2021CSU000115

PATIENT

DRUGS (5)
  1. WARFARIN [Concomitant]
     Active Substance: WARFARIN
     Indication: ANTICOAGULANT THERAPY
  2. HYDROCODONE/ACETAMINOPHEN [Concomitant]
     Active Substance: ACETAMINOPHEN\HYDROCODONE
  3. OMNIPAQUE [Suspect]
     Active Substance: IOHEXOL
     Indication: OSTEOLYSIS
  4. PREDNISONE. [Concomitant]
     Active Substance: PREDNISONE
     Dosage: TAPERING DOSE
  5. OMNIPAQUE [Suspect]
     Active Substance: IOHEXOL
     Indication: SPINAL MYELOGRAM
     Dosage: 15 ML, SINGLE
     Route: 037

REACTIONS (1)
  - Spinal shock [Recovered/Resolved]
